FAERS Safety Report 9236196 (Version 2)
Quarter: 2013Q2

REPORT INFORMATION
  Report Type: Spontaneous
  Country: US (occurrence: US)
  Receive Date: 20130417
  Receipt Date: 20130509
  Transmission Date: 20140414
  Serious: Yes (Congenital Anomaly, Other)
  Sender: FDA-Public Use
  Company Number: US-PFIZER INC-2013119106

PATIENT
  Sex: Female

DRUGS (9)
  1. ZOLOFT [Suspect]
     Indication: DEPRESSION
     Dosage: UNK
     Route: 064
     Dates: start: 200905, end: 200912
  2. ZOLOFT [Suspect]
     Dosage: UNK
     Route: 064
     Dates: start: 201002, end: 201007
  3. SERTRALINE HCL [Suspect]
     Indication: DEPRESSION
     Dosage: UNK
     Route: 064
     Dates: start: 200905, end: 200912
  4. SERTRALINE HCL [Suspect]
     Dosage: UNK
     Route: 064
     Dates: start: 20090812
  5. SERTRALINE HCL [Suspect]
     Dosage: UNK
     Route: 064
     Dates: start: 201002, end: 201007
  6. TYLENOL [Concomitant]
     Dosage: UNK
     Route: 064
  7. TUMS [Concomitant]
     Dosage: UNK
     Route: 064
  8. ^NATURE MADE^ MULTI PRENATAL VITAMIN [Concomitant]
     Dosage: UNK
     Route: 064
  9. DHA [Concomitant]
     Dosage: UNK
     Route: 064

REACTIONS (2)
  - Foetal exposure during pregnancy [Unknown]
  - Cleft lip and palate [Unknown]
